FAERS Safety Report 4587034-1 (Version None)
Quarter: 2005Q1

REPORT INFORMATION
  Report Type: 
  Country: None (occurrence: None)
  Receive Date: 20050218
  Receipt Date: 20040128
  Transmission Date: 20050727
  Serious: Yes (Other)
  Sender: FDA-Public Use
  Company Number: RU-BRISTOL-MYERS SQUIBB COMPANY-12489050

PATIENT
  Age: 61 Year
  Sex: Female

DRUGS (8)
  1. PACLITAXEL [Suspect]
     Indication: OVARIAN CANCER
     Route: 042
     Dates: start: 20031218, end: 20031218
  2. CARBOPLATIN [Suspect]
     Indication: OVARIAN CANCER
     Dates: start: 20031218, end: 20031218
  3. INTERFERON GAMMA [Suspect]
     Indication: OVARIAN CANCER
     Route: 058
     Dates: start: 20031218, end: 20031218
  4. DEXAMETHASONE [Concomitant]
     Route: 042
     Dates: start: 20031124
  5. RANITIDINE [Concomitant]
     Route: 042
     Dates: start: 20031125
  6. DIPHENHYDRAMINE HCL [Concomitant]
     Route: 042
     Dates: start: 20031125
  7. ONDANSETRON [Concomitant]
     Route: 042
     Dates: start: 20031125
  8. ACETAMINOPHEN [Concomitant]
     Route: 048
     Dates: start: 20031125

REACTIONS (2)
  - DEPRESSION [None]
  - POLYNEUROPATHY [None]
